FAERS Safety Report 25158989 (Version 1)
Quarter: 2025Q2

REPORT INFORMATION
  Report Type: Spontaneous
  Country: PT (occurrence: PT)
  Receive Date: 20250404
  Receipt Date: 20250404
  Transmission Date: 20250716
  Serious: Yes (Other)
  Sender: AUROBINDO
  Company Number: PT-ORESUND-25OPAJY0171P

PATIENT
  Age: 7 Decade
  Sex: Male

DRUGS (9)
  1. PREDNISOLONE [Suspect]
     Active Substance: PREDNISOLONE
     Indication: Seronegative arthritis
     Route: 065
  2. PREDNISOLONE [Suspect]
     Active Substance: PREDNISOLONE
     Route: 065
  3. PREDNISOLONE [Suspect]
     Active Substance: PREDNISOLONE
     Route: 065
  4. TOCILIZUMAB [Suspect]
     Active Substance: TOCILIZUMAB
     Indication: Seronegative arthritis
     Route: 065
  5. TOCILIZUMAB [Suspect]
     Active Substance: TOCILIZUMAB
     Route: 058
  6. METHOTREXATE [Suspect]
     Active Substance: METHOTREXATE
     Indication: Seronegative arthritis
     Dosage: 12.5 MILLIGRAM, EVERY WEEK
     Route: 065
  7. VILDAGLIPTIN [Suspect]
     Active Substance: VILDAGLIPTIN
     Indication: Type 2 diabetes mellitus
     Route: 065
  8. VILDAGLIPTIN [Concomitant]
     Active Substance: VILDAGLIPTIN
     Indication: Seronegative arthritis
     Route: 065
  9. INSULIN NOS [Concomitant]
     Active Substance: INSULIN NOS
     Indication: Product used for unknown indication
     Route: 065

REACTIONS (16)
  - Diabetes mellitus inadequate control [Unknown]
  - Insulin-requiring type 2 diabetes mellitus [Unknown]
  - Chronic kidney disease [Unknown]
  - Substance-induced psychotic disorder [Unknown]
  - Diabetic nephropathy [Unknown]
  - Autoimmune disorder [Recovered/Resolved]
  - Aggression [Unknown]
  - Anxiety [Unknown]
  - Psychotic disorder [Unknown]
  - Rebound effect [Unknown]
  - Concomitant disease aggravated [Unknown]
  - Inflammatory marker increased [Unknown]
  - Herpes zoster reactivation [Recovered/Resolved]
  - Therapy change [Unknown]
  - Drug ineffective [Unknown]
  - Off label use [Unknown]
